FAERS Safety Report 8920143 (Version 2)
Quarter: 2012Q4

REPORT INFORMATION
  Report Type: 
  Country: US (occurrence: US)
  Receive Date: 20121122
  Receipt Date: 20121206
  Transmission Date: 20130627
  Serious: Yes (Other)
  Sender: FDA-Public Use
  Company Number: US-ROCHE-1158937

PATIENT
  Age: 71 Year
  Sex: Female
  Weight: 62.65 kg

DRUGS (4)
  1. BONIVA [Suspect]
     Indication: OSTEOPOROSIS
     Route: 065
     Dates: start: 200608, end: 201108
  2. SIMVASTATIN [Concomitant]
     Route: 065
  3. LEVOFLOXACIN [Concomitant]
     Route: 065
  4. TEMAZEPAM [Concomitant]
     Route: 065

REACTIONS (1)
  - Oesophageal adenocarcinoma [Unknown]
